FAERS Safety Report 8307443-4 (Version None)
Quarter: 2012Q2

REPORT INFORMATION
  Report Type: 
  Country: None (occurrence: None)
  Receive Date: 20120424
  Receipt Date: 20120419
  Transmission Date: 20120825
  Serious: Yes (Hospitalization, Disabling, Other)
  Sender: FDA-Public Use
  Company Number: US-ROXANE LABORATORIES, INC.-2012-RO-01008RO

PATIENT
  Sex: Male

DRUGS (2)
  1. PREDNISONE TAB [Suspect]
     Indication: GLOMERULONEPHRITIS
     Dosage: 60 MG
     Route: 048
     Dates: start: 20100202, end: 20110510
  2. PREDNISONE TAB [Suspect]
     Dosage: 20 MG
     Route: 048
     Dates: start: 20110511, end: 20110630

REACTIONS (8)
  - MONOPLEGIA [None]
  - CATARACT [None]
  - BLINDNESS [None]
  - PAIN [None]
  - DIABETES MELLITUS INADEQUATE CONTROL [None]
  - RENAL FAILURE [None]
  - MYOPATHY [None]
  - DECUBITUS ULCER [None]
